FAERS Safety Report 20429607 (Version 1)
Quarter: 2022Q1

REPORT INFORMATION
  Report Type: Report from Study
  Country: FR (occurrence: FR)
  Receive Date: 20220204
  Receipt Date: 20220204
  Transmission Date: 20220423
  Serious: Yes (Other)
  Sender: FDA-Public Use
  Company Number: FR-SERVIER-S19006428

PATIENT

DRUGS (7)
  1. ONCASPAR [Suspect]
     Active Substance: PEGASPARGASE
     Indication: Acute lymphocytic leukaemia
     Dosage: 1125 IU ON D12 AND D26
     Route: 042
     Dates: start: 20190427, end: 20190511
  2. TN UNSPECIFIED [Concomitant]
     Indication: Acute lymphocytic leukaemia
     Dosage: 0.7 MG ON D8-15-22-29
     Route: 042
     Dates: start: 20190423, end: 20190514
  3. TN UNSPECIFIED [Concomitant]
     Indication: Acute lymphocytic leukaemia
     Dosage: 14.5 MG ON D8-15-22-29
     Route: 042
     Dates: start: 20190423, end: 20190514
  4. TN UNSPECIFIED [Concomitant]
     Indication: Acute lymphocytic leukaemia
     Dosage: 30 MG ON D8 TO D28
     Route: 042
     Dates: start: 20190423
  5. TN UNSPECIFIED [Concomitant]
     Indication: Acute lymphocytic leukaemia
     Dosage: 8 MG ON D13-24
     Route: 037
     Dates: start: 20190428, end: 20190509
  6. TN UNSPECIFIED [Concomitant]
     Indication: Acute lymphocytic leukaemia
     Dosage: 20 MG ON D13-24
     Route: 037
     Dates: start: 20190428, end: 20190509
  7. TN UNSPECIFIED [Concomitant]
     Indication: Acute lymphocytic leukaemia
     Dosage: 10 MG ON D13-24
     Route: 037
     Dates: start: 20190428, end: 20190509

REACTIONS (2)
  - Hypofibrinogenaemia [Recovered/Resolved]
  - Cholestasis [Recovered/Resolved]

NARRATIVE: CASE EVENT DATE: 20190429
